FAERS Safety Report 15759976 (Version 1)
Quarter: 2018Q4

REPORT INFORMATION
  Report Type: Report from Study
  Country: None (occurrence: US)
  Receive Date: 20181226
  Receipt Date: 20181226
  Transmission Date: 20190205
  Serious: Yes (Other)
  Sender: FDA-Public Use
  Company Number: US-ABBVIE-17K-163-1847028-00

PATIENT
  Age: 50 Year
  Sex: Male

DRUGS (1)
  1. HUMIRA [Suspect]
     Active Substance: ADALIMUMAB
     Indication: ANKYLOSING SPONDYLITIS
     Route: 058

REACTIONS (29)
  - Intervertebral disc degeneration [Recovering/Resolving]
  - Weight gain poor [Unknown]
  - Influenza [Recovering/Resolving]
  - Gastroenteritis viral [Recovering/Resolving]
  - Dizziness [Not Recovered/Not Resolved]
  - Anaemia [Unknown]
  - Astigmatism [Not Recovered/Not Resolved]
  - Bursitis [Unknown]
  - Pulmonary mass [Unknown]
  - Migraine [Unknown]
  - Nasal oedema [Unknown]
  - Chest pain [Recovered/Resolved]
  - Back pain [Unknown]
  - Nasopharyngitis [Unknown]
  - Drug interaction [Unknown]
  - Dizziness [Recovered/Resolved]
  - Fall [Not Recovered/Not Resolved]
  - Spinal column injury [Not Recovered/Not Resolved]
  - Road traffic accident [Not Recovered/Not Resolved]
  - Oral surgery [Unknown]
  - Weight decreased [Unknown]
  - Sensitivity to weather change [Unknown]
  - Diplopia [Recovered/Resolved]
  - Coccydynia [Not Recovered/Not Resolved]
  - Arthralgia [Unknown]
  - Intervertebral disc protrusion [Recovering/Resolving]
  - Hunger [Unknown]
  - Partial seizures [Unknown]
  - Abdominal pain upper [Unknown]

NARRATIVE: CASE EVENT DATE: 2017
